FAERS Safety Report 16563861 (Version 1)
Quarter: 2019Q3

REPORT INFORMATION
  Report Type: Spontaneous
  Country: FR (occurrence: FR)
  Receive Date: 20190712
  Receipt Date: 20190712
  Transmission Date: 20191004
  Serious: Yes (Hospitalization)
  Sender: FDA-Public Use
  Company Number: FR-ROCHE-2353988

PATIENT
  Age: 5 Year
  Sex: Male
  Weight: 23.1 kg

DRUGS (2)
  1. CELLCEPT [Suspect]
     Active Substance: MYCOPHENOLATE MOFETIL\MYCOPHENOLATE MOFETIL HYDROCHLORIDE
     Indication: NEPHROTIC SYNDROME
     Route: 048
     Dates: start: 20181019, end: 20190521
  2. CORTANCYL [Suspect]
     Active Substance: PREDNISONE
     Indication: NEPHROTIC SYNDROME
     Route: 048
     Dates: start: 20181019, end: 20190515

REACTIONS (1)
  - Intracranial pressure increased [Recovered/Resolved]

NARRATIVE: CASE EVENT DATE: 20190515
